FAERS Safety Report 15499610 (Version 1)
Quarter: 2018Q4

REPORT INFORMATION
  Report Type: Spontaneous
  Country: US (occurrence: US)
  Receive Date: 20181015
  Receipt Date: 20181015
  Transmission Date: 20190205
  Serious: Yes (Other)
  Sender: FDA-Public Use
  Company Number: None

PATIENT
  Age: 44 Year
  Sex: Female
  Weight: 82.35 kg

DRUGS (1)
  1. FERAHEME [Suspect]
     Active Substance: FERUMOXYTOL NON-STOICHIOMETRIC MAGNETITE
     Indication: IRON DEFICIENCY ANAEMIA
     Route: 041
     Dates: start: 20181012, end: 20181012

REACTIONS (3)
  - Headache [None]
  - Hypertension [None]
  - Nausea [None]

NARRATIVE: CASE EVENT DATE: 20181012
